FAERS Safety Report 7189769-3 (Version None)
Quarter: 2010Q4

REPORT INFORMATION
  Report Type: 
  Country: None (occurrence: None)
  Receive Date: 20101223
  Receipt Date: 20101215
  Transmission Date: 20110411
  Serious: No
  Sender: FDA-Public Use
  Company Number: US-BIOGENIDEC-2010BI044202

PATIENT
  Age: 50 Year
  Sex: Female

DRUGS (3)
  1. TYSABRI [Suspect]
     Indication: MULTIPLE SCLEROSIS
     Route: 042
     Dates: start: 20070129
  2. TYSABRI [Suspect]
     Route: 042
     Dates: start: 20040101, end: 20050201
  3. GABITRIL [Concomitant]
     Indication: MIGRAINE
     Route: 048

REACTIONS (11)
  - ABASIA [None]
  - BLOOD PRESSURE INCREASED [None]
  - DIZZINESS [None]
  - HEADACHE [None]
  - HYPOAESTHESIA [None]
  - HYPOTONIA [None]
  - LOSS OF CONTROL OF LEGS [None]
  - MIGRAINE [None]
  - NAUSEA [None]
  - OXYGEN SATURATION DECREASED [None]
  - RETCHING [None]
